FAERS Safety Report 24910116 (Version 1)
Quarter: 2025Q1

REPORT INFORMATION
  Report Type: Spontaneous
  Country: AL (occurrence: AL)
  Receive Date: 20250131
  Receipt Date: 20250131
  Transmission Date: 20250409
  Serious: Yes (Other)
  Sender: AMGEN
  Company Number: AL-AMGEN-ALBSP2025016809

PATIENT
  Age: 48 Year
  Sex: Male

DRUGS (13)
  1. ADALIMUMAB [Suspect]
     Active Substance: ADALIMUMAB
     Indication: Axial spondyloarthritis
     Dosage: 40 MILLIGRAM, 2 TIMES/WK
     Route: 065
  2. PREDNISONE [Suspect]
     Active Substance: PREDNISONE
     Indication: Axial spondyloarthritis
     Dosage: 5 MILLIGRAM, QD, FOR 3 MONTHS
     Route: 065
  3. PREDNISONE [Suspect]
     Active Substance: PREDNISONE
     Dosage: 0.5 MILLIGRAM, QD
     Route: 065
  4. RAMIPRIL [Concomitant]
     Active Substance: RAMIPRIL
     Indication: Hypertension
     Dosage: 5 MILLIGRAM, QD
  5. METFORMIN [Concomitant]
     Active Substance: METFORMIN HYDROCHLORIDE
     Indication: Type 2 diabetes mellitus
     Dosage: 850 MILLIGRAM, QD
  6. SULFASALAZINE [Concomitant]
     Active Substance: SULFASALAZINE
     Indication: Axial spondyloarthritis
     Dosage: 2XL GR, QD
  7. METHOTREXATE [Concomitant]
     Active Substance: METHOTREXATE
     Indication: Axial spondyloarthritis
     Dosage: 2.5 MILLIGRAM, QD
  8. METHOTREXATE [Concomitant]
     Active Substance: METHOTREXATE
     Dosage: 6 TABLETS, QWK
  9. NAPROXEN [Concomitant]
     Active Substance: NAPROXEN
     Indication: Axial spondyloarthritis
     Dosage: 250 MILLIGRAM, BID
  10. OMEPRAZOLE [Concomitant]
     Active Substance: OMEPRAZOLE
     Indication: Product used for unknown indication
     Dosage: 20 MILLIGRAM, QD
  11. FOLIC ACID [Concomitant]
     Active Substance: FOLIC ACID
     Indication: Product used for unknown indication
     Dosage: 5 MILLIGRAM, BID
  12. MYCOPHENOLATE MOFETIL [Concomitant]
     Active Substance: MYCOPHENOLATE MOFETIL
     Indication: Axial spondyloarthritis
     Dosage: 500 MILLIGRAM, BID
  13. Beta [Concomitant]
     Indication: Axial spondyloarthritis

REACTIONS (3)
  - Cutaneous vasculitis [Unknown]
  - Pain [Unknown]
  - Inflammatory marker increased [Unknown]
